FAERS Safety Report 18905663 (Version 1)
Quarter: 2021Q1

REPORT INFORMATION
  Report Type: Spontaneous
  Country: GB (occurrence: GB)
  Receive Date: 20210217
  Receipt Date: 20210217
  Transmission Date: 20210420
  Serious: Yes (Hospitalization, Other)
  Sender: FDA-Public Use
  Company Number: GB-MYLANLABS-2021M1001590

PATIENT
  Age: 43 Year
  Sex: Male

DRUGS (6)
  1. CLOZARIL [Suspect]
     Active Substance: CLOZAPINE
     Indication: SCHIZOPHRENIA
     Dosage: UNK
     Route: 048
     Dates: start: 20201217
  2. CLOZARIL [Suspect]
     Active Substance: CLOZAPINE
     Dosage: 125 MILLIGRAM, PM
     Route: 048
     Dates: start: 20201229
  3. CHOLECALCIFEROL [Concomitant]
     Active Substance: CHOLECALCIFEROL
     Indication: VITAMIN D DEFICIENCY
     Dosage: 40000 UNITS ONCE WEEKLY
  4. CLOZARIL [Suspect]
     Active Substance: CLOZAPINE
     Dosage: 100 MILLIGRAM, AM
     Route: 048
     Dates: start: 20201231
  5. CLOZARIL [Suspect]
     Active Substance: CLOZAPINE
     Dosage: 100 MILLIGRAM, AM
     Route: 048
     Dates: start: 20201229
  6. CLOZARIL [Suspect]
     Active Substance: CLOZAPINE
     Dosage: 175 MILLIGRAM, PM
     Route: 048
     Dates: start: 20201231, end: 20201231

REACTIONS (7)
  - Atrial fibrillation [Recovered/Resolved]
  - Electrocardiogram abnormal [Unknown]
  - Hypotension [Unknown]
  - Gastroenteritis [Recovered/Resolved]
  - Eosinophilia [Unknown]
  - Left ventricular dysfunction [Unknown]
  - Tachycardia [Unknown]

NARRATIVE: CASE EVENT DATE: 20201227
